FAERS Safety Report 14034262 (Version 2)
Quarter: 2017Q4

REPORT INFORMATION
  Report Type: Report from Study
  Country: US (occurrence: US)
  Receive Date: 20171003
  Receipt Date: 20171006
  Transmission Date: 20180321
  Serious: Yes (Other)
  Sender: FDA-Public Use
  Company Number: US-BRISTOL-MYERS SQUIBB COMPANY-BMS-2017-086765

PATIENT
  Sex: Male

DRUGS (1)
  1. IPILIMUMAB [Suspect]
     Active Substance: IPILIMUMAB
     Indication: PRODUCT USED FOR UNKNOWN INDICATION
     Dosage: 1110 MG, Q3WK
     Route: 042
     Dates: start: 201701

REACTIONS (5)
  - Acne [Unknown]
  - Erythema [Unknown]
  - Nasal ulcer [Unknown]
  - Malignant neoplasm progression [Unknown]
  - Uveitis [Recovering/Resolving]
